FAERS Safety Report 7425727-9 (Version None)
Quarter: 2011Q2

REPORT INFORMATION
  Report Type: 
  Country: None (occurrence: None)
  Receive Date: 20110420
  Receipt Date: 20110412
  Transmission Date: 20111010
  Serious: Yes (Other)
  Sender: FDA-Public Use
  Company Number: JP-BRISTOL-MYERS SQUIBB COMPANY-15674674

PATIENT
  Age: 43 Year
  Sex: Male

DRUGS (4)
  1. REYATAZ [Suspect]
     Indication: HIV INFECTION
     Route: 048
     Dates: start: 20061020, end: 20100310
  2. INSULIN [Concomitant]
     Indication: DIABETES MELLITUS
     Dates: start: 20060901
  3. NORVIR [Suspect]
     Indication: HIV INFECTION
     Dosage: CAPSULE
     Route: 048
     Dates: start: 20061002
  4. EPZICOM [Suspect]
     Indication: HIV INFECTION
     Dosage: 1DF=1TABLET
     Route: 048
     Dates: start: 20061002

REACTIONS (2)
  - PYELONEPHRITIS ACUTE [None]
  - CALCULUS URETERIC [None]
